FAERS Safety Report 12784961 (Version 1)
Quarter: 2016Q3

REPORT INFORMATION
  Report Type: Spontaneous
  Country: US (occurrence: US)
  Receive Date: 20160927
  Receipt Date: 20160927
  Transmission Date: 20161109
  Serious: No
  Sender: FDA-Public Use
  Company Number: US-IGSA-GTI003500

PATIENT
  Age: 44 Year
  Sex: Female
  Weight: 53 kg

DRUGS (27)
  1. SPIRONOLACTONE. [Concomitant]
     Active Substance: SPIRONOLACTONE
  2. CARDIZEM [Concomitant]
     Active Substance: DILTIAZEM HYDROCHLORIDE
  3. PROLASTIN-C [Suspect]
     Active Substance: .ALPHA.1-PROTEINASE INHIBITOR HUMAN
     Indication: ALPHA-1 ANTI-TRYPSIN DEFICIENCY
     Route: 042
     Dates: start: 20150826
  4. NOVOLOG [Concomitant]
     Active Substance: INSULIN ASPART
  5. CLONIDINE /00171102/ [Concomitant]
     Active Substance: CLONIDINE
  6. MULTIVITAMIN /07504101/ [Concomitant]
     Active Substance: VITAMINS
  7. SPIRIVA [Concomitant]
     Active Substance: TIOTROPIUM BROMIDE MONOHYDRATE
  8. SINGULAIR [Concomitant]
     Active Substance: MONTELUKAST SODIUM
  9. AMITRIPTYLINE [Concomitant]
     Active Substance: AMITRIPTYLINE
  10. TYLENOL [Concomitant]
     Active Substance: ACETAMINOPHEN
     Indication: PREMEDICATION
  11. PANTOPRAZOLE /01263204/ [Concomitant]
     Active Substance: PANTOPRAZOLE SODIUM
  12. PROLASTIN-C [Suspect]
     Active Substance: .ALPHA.1-PROTEINASE INHIBITOR HUMAN
     Indication: ALPHA-1 ANTI-TRYPSIN DEFICIENCY
     Route: 042
     Dates: start: 201405, end: 201505
  13. ZITHROMYCIN [Concomitant]
     Active Substance: AZITHROMYCIN ANHYDROUS
  14. ALBUTEROL /00139501/ [Concomitant]
     Active Substance: ALBUTEROL
  15. TRAZODONE [Concomitant]
     Active Substance: TRAZODONE HYDROCHLORIDE
  16. LEVAQUIN [Concomitant]
     Active Substance: LEVOFLOXACIN
  17. CLOTRIMAZOLE. [Concomitant]
     Active Substance: CLOTRIMAZOLE
  18. BENZONATATE. [Concomitant]
     Active Substance: BENZONATATE
  19. PROVENTIL [Concomitant]
     Active Substance: ALBUTEROL
  20. VITAMIN D /00107901/ [Concomitant]
     Active Substance: ERGOCALCIFEROL
  21. PROLASTIN-C [Suspect]
     Active Substance: .ALPHA.1-PROTEINASE INHIBITOR HUMAN
     Indication: ALPHA-1 ANTI-TRYPSIN DEFICIENCY
     Route: 042
     Dates: start: 20150819
  22. AMARYL [Concomitant]
     Active Substance: GLIMEPIRIDE
  23. TOBRAMICIN [Concomitant]
  24. GAMMAGARD [Concomitant]
     Active Substance: HUMAN IMMUNOGLOBULIN G
     Route: 058
  25. LISINOPRIL. [Concomitant]
     Active Substance: LISINOPRIL
  26. NORCO [Concomitant]
     Active Substance: ACETAMINOPHEN\HYDROCODONE BITARTRATE
  27. MOBIC [Concomitant]
     Active Substance: MELOXICAM

REACTIONS (2)
  - Pain [Not Recovered/Not Resolved]
  - Pyrexia [Not Recovered/Not Resolved]

NARRATIVE: CASE EVENT DATE: 2014
